FAERS Safety Report 4557807-X (Version None)
Quarter: 2005Q1

REPORT INFORMATION
  Report Type: 
  Country: None (occurrence: None)
  Receive Date: 20050118
  Receipt Date: 20040112
  Transmission Date: 20050727
  Serious: Yes (Other)
  Sender: FDA-Public Use
  Company Number: DEWYE243930NOV04

PATIENT
  Age: 57 Year
  Sex: Female

DRUGS (4)
  1. TREVILOR RETARD                                  (VENLAFAXINE HYDROCHL [Suspect]
     Indication: DEPRESSION
     Dosage: 150 MG 1X PER 1 DAY ORAL; SEE IMAGE
     Route: 048
  2. ACETYLSALICYLIC ACID SRT [Concomitant]
  3. BISOPROLOL FUMARATE [Concomitant]
  4. CIBECEN                   (BENZAPRIL HYDROCHLORIDE) [Concomitant]

REACTIONS (4)
  - DELIRIUM [None]
  - DRUG TOXICITY [None]
  - DRUG WITHDRAWAL SYNDROME [None]
  - GRAND MAL CONVULSION [None]
